FAERS Safety Report 15739768 (Version 3)
Quarter: 2019Q1

REPORT INFORMATION
  Report Type: Spontaneous
  Country: VN (occurrence: VN)
  Receive Date: 20181219
  Receipt Date: 20190124
  Transmission Date: 20190417
  Serious: Yes (Other)
  Sender: FDA-Public Use
  Company Number: VN-B.I. PHARMACEUTICALS,INC./RIDGEFIELD-2018-BI-060115

PATIENT
  Age: 70 Year
  Sex: Female
  Weight: 74 kg

DRUGS (3)
  1. DIAMICRON [Concomitant]
     Active Substance: GLICLAZIDE
     Indication: PRODUCT USED FOR UNKNOWN INDICATION
     Route: 065
     Dates: start: 20181203, end: 20181208
  2. JARDIANCE [Suspect]
     Active Substance: EMPAGLIFLOZIN
     Indication: TYPE 2 DIABETES MELLITUS
     Route: 065
     Dates: start: 20181203, end: 20181208
  3. DIAMICRON [Concomitant]
     Active Substance: GLICLAZIDE
     Route: 065

REACTIONS (1)
  - Diabetic ketoacidosis [Recovered/Resolved]

NARRATIVE: CASE EVENT DATE: 20181208
